FAERS Safety Report 8981670 (Version 1)
Quarter: 2012Q4

REPORT INFORMATION
  Report Type: 
  Country: US (occurrence: US)
  Receive Date: 20121223
  Receipt Date: 20121223
  Transmission Date: 20130627
  Serious: No
  Sender: FDA-Public Use
  Company Number: US-009507513-1212USA008828

PATIENT
  Age: 49 Year
  Sex: Male

DRUGS (8)
  1. PEG-INTRON [Suspect]
     Dosage: 120 Microgram/ 0.5ml, qw
     Route: 058
  2. RIBAVIRIN [Suspect]
  3. TRAZODONE HYDROCHLORIDE [Concomitant]
  4. CITALOPRAM [Concomitant]
  5. ONDANSETRON [Concomitant]
     Dosage: orally disintegrating tablet (ODT)
  6. ADVAIR [Concomitant]
     Dosage: 500/50
  7. COMBIVENT [Concomitant]
  8. ASPIRIN [Concomitant]

REACTIONS (1)
  - Rash pruritic [Unknown]
